FAERS Safety Report 5650554-2 (Version None)
Quarter: 2008Q1

REPORT INFORMATION
  Report Type: 
  Country: None (occurrence: None)
  Receive Date: 20080304
  Receipt Date: 20080304
  Transmission Date: 20080703
  Serious: Yes (Hospitalization)
  Sender: FDA-Public Use
  Company Number: None

PATIENT
  Sex: Male

DRUGS (1)
  1. TYSABRI [Suspect]
     Indication: MULTIPLE SCLEROSIS
     Dosage: 300 MG ONE IV DRIP QMONTH DURING EXACERBATION
     Route: 041
     Dates: start: 20050223, end: 20080221

REACTIONS (6)
  - BACK PAIN [None]
  - BLOOD PRESSURE DECREASED [None]
  - BRADYCARDIA [None]
  - FLUSHING [None]
  - INFUSION RELATED REACTION [None]
  - LOSS OF CONSCIOUSNESS [None]
